FAERS Safety Report 24548717 (Version 4)
Quarter: 2025Q1

REPORT INFORMATION
  Report Type: Spontaneous
  Country: US (occurrence: US)
  Receive Date: 20241025
  Receipt Date: 20250227
  Transmission Date: 20250409
  Serious: Yes (Other)
  Sender: PFIZER
  Company Number: US-PFIZER INC-202400258577

PATIENT
  Age: 67 Year
  Sex: Female

DRUGS (4)
  1. TUKYSA [Suspect]
     Active Substance: TUCATINIB
     Indication: Breast cancer metastatic
     Dosage: 2 150 MG TABLETS TWICE A DAY ORALLY
     Route: 048
  2. TUKYSA [Suspect]
     Active Substance: TUCATINIB
  3. TUKYSA [Suspect]
     Active Substance: TUCATINIB
     Dosage: TAKE TWO 150MG TABLETS BY MOUTH TWICE DAILY
     Route: 048
  4. XELODA [Concomitant]
     Active Substance: CAPECITABINE

REACTIONS (4)
  - Pneumonia bacterial [Unknown]
  - Diarrhoea [Unknown]
  - Neoplasm progression [Unknown]
  - Off label use [Unknown]
